FAERS Safety Report 8120237-8 (Version None)
Quarter: 2012Q1

REPORT INFORMATION
  Report Type: 
  Country: None (occurrence: None)
  Receive Date: 20120207
  Receipt Date: 20120131
  Transmission Date: 20120608
  Serious: Yes (Other)
  Sender: FDA-Public Use
  Company Number: US-ASTRAZENECA-2012SE06485

PATIENT
  Age: 48 Year
  Sex: Female
  Weight: 73.9 kg

DRUGS (12)
  1. SEROQUEL [Suspect]
     Route: 048
  2. SEROQUEL [Suspect]
     Indication: SLEEP DISORDER
     Route: 048
  3. SEROQUEL [Suspect]
     Route: 048
  4. SEROQUEL [Suspect]
     Route: 048
  5. SEROQUEL [Suspect]
     Route: 048
  6. SEROQUEL [Suspect]
     Indication: ANXIETY
     Route: 048
  7. SEROQUEL [Suspect]
     Route: 048
  8. SEROQUEL [Suspect]
     Route: 048
  9. SEROQUEL [Suspect]
     Indication: DEPRESSION
     Route: 048
  10. PRISTIQ [Concomitant]
     Indication: DEPRESSION
     Dosage: 50 DAILY
  11. TAMOXIFEN CITRATE [Concomitant]
     Indication: BREAST CANCER
  12. NEURONTIN [Concomitant]
     Indication: NEUROPATHY PERIPHERAL

REACTIONS (3)
  - SOMNOLENCE [None]
  - BREAST CANCER [None]
  - OFF LABEL USE [None]
